FAERS Safety Report 10943543 (Version 2)
Quarter: 2015Q2

REPORT INFORMATION
  Report Type: Spontaneous
  Country: US (occurrence: US)
  Receive Date: 20150322
  Receipt Date: 20150526
  Transmission Date: 20150821
  Serious: No
  Sender: FDA-Public Use
  Company Number: US-JNJFOC-20140617282

PATIENT
  Age: 30 Year
  Sex: Female

DRUGS (12)
  1. PAROXETINE [Concomitant]
     Active Substance: PAROXETINE\PAROXETINE HYDROCHLORIDE
     Indication: GENERALISED ANXIETY DISORDER
     Dosage: CONTINUED TILL DAY 655
     Route: 065
  2. RISPERIDONE. [Suspect]
     Active Substance: RISPERIDONE
     Indication: SLEEP TERROR
     Route: 048
  3. TEMAZEPAM. [Concomitant]
     Active Substance: TEMAZEPAM
     Indication: HYPERSOMNIA
     Dosage: CONTINUED TILL DAY 655
     Route: 065
  4. CYPROHEPTADINE. [Concomitant]
     Active Substance: CYPROHEPTADINE
     Indication: ANORGASMIA
     Dosage: CONTINUED TILL DAY 655
     Route: 065
  5. RISPERIDONE. [Suspect]
     Active Substance: RISPERIDONE
     Indication: SOMNAMBULISM
     Route: 048
  6. PAROXETINE [Concomitant]
     Active Substance: PAROXETINE\PAROXETINE HYDROCHLORIDE
     Indication: OBSESSIVE-COMPULSIVE DISORDER
     Route: 065
  7. PAROXETINE [Concomitant]
     Active Substance: PAROXETINE\PAROXETINE HYDROCHLORIDE
     Indication: GENERALISED ANXIETY DISORDER
     Route: 065
  8. RISPERIDONE. [Suspect]
     Active Substance: RISPERIDONE
     Indication: SOMNAMBULISM
     Route: 048
  9. RISPERIDONE. [Suspect]
     Active Substance: RISPERIDONE
     Indication: SLEEP TERROR
     Route: 048
  10. PAROXETINE [Concomitant]
     Active Substance: PAROXETINE\PAROXETINE HYDROCHLORIDE
     Indication: OBSESSIVE-COMPULSIVE PERSONALITY DISORDER
     Dosage: CONTINUED TILL DAY 655
     Route: 065
  11. PAROXETINE [Concomitant]
     Active Substance: PAROXETINE\PAROXETINE HYDROCHLORIDE
     Indication: OBSESSIVE-COMPULSIVE DISORDER
     Dosage: CONTINUED TILL DAY 655
     Route: 065
  12. PAROXETINE [Concomitant]
     Active Substance: PAROXETINE\PAROXETINE HYDROCHLORIDE
     Indication: OBSESSIVE-COMPULSIVE PERSONALITY DISORDER
     Route: 065

REACTIONS (4)
  - Product use issue [Unknown]
  - Sleep terror [Unknown]
  - Somnambulism [Unknown]
  - Therapeutic response unexpected [Unknown]
